FAERS Safety Report 18784933 (Version 2)
Quarter: 2021Q1

REPORT INFORMATION
  Report Type: Report from Study
  Country: DE (occurrence: DE)
  Receive Date: 20210126
  Receipt Date: 20210201
  Transmission Date: 20210419
  Serious: Yes (Hospitalization)
  Sender: FDA-Public Use
  Company Number: DE-ROCHE-2752361

PATIENT
  Age: 60 Year
  Sex: Female
  Weight: 63 kg

DRUGS (16)
  1. ASPIRIN. [Concomitant]
     Active Substance: ASPIRIN
     Route: 048
  2. RAMIPRIL. [Concomitant]
     Active Substance: RAMIPRIL
     Route: 048
     Dates: start: 20210113
  3. MICROLUT [Concomitant]
     Active Substance: LEVONORGESTREL
     Route: 048
     Dates: start: 20210111, end: 20210116
  4. GLUCOS [Concomitant]
     Route: 042
     Dates: start: 20210116, end: 20210116
  5. TORASEMIDE [Concomitant]
     Active Substance: TORSEMIDE
     Route: 048
     Dates: start: 20210115
  6. POSTERISAN AKUT [Concomitant]
     Dates: start: 20210115
  7. ACICLOVIR [Concomitant]
     Active Substance: ACYCLOVIR
     Route: 048
     Dates: start: 20210116
  8. ACICLOVIR [Concomitant]
     Active Substance: ACYCLOVIR
     Route: 042
     Dates: start: 20210101, end: 20210115
  9. HEPAMERZ [ORNITHINE ASPARTATE] [Concomitant]
     Route: 048
     Dates: start: 20210116
  10. METOHEXAL [Concomitant]
     Active Substance: METOPROLOL
     Route: 048
     Dates: start: 20210113
  11. SIMVASTATIN. [Concomitant]
     Active Substance: SIMVASTATIN
     Route: 048
     Dates: start: 20210103
  12. PREGABALIN. [Concomitant]
     Active Substance: PREGABALIN
     Route: 048
     Dates: start: 20210115
  13. VELTASSA [Concomitant]
     Active Substance: PATIROMER
     Route: 048
     Dates: start: 20210116, end: 20210116
  14. LASIX [Concomitant]
     Active Substance: FUROSEMIDE
     Route: 042
     Dates: start: 20210115, end: 20210115
  15. OBINUTUZUMAB. [Suspect]
     Active Substance: OBINUTUZUMAB
     Indication: CHRONIC LYMPHOCYTIC LEUKAEMIA
     Dosage: ON 13/JAN/2021, SHE RECEIVED MOST RECENT DOSE OF OBINUTUZUMAB PRIOR TO AE/SAE
     Route: 042
     Dates: start: 20210112
  16. RASBURICASE [Concomitant]
     Active Substance: RASBURICASE
     Route: 042
     Dates: start: 20210115, end: 20210115

REACTIONS (1)
  - Pneumonia [Recovered/Resolved]

NARRATIVE: CASE EVENT DATE: 20210115
